FAERS Safety Report 7694303-5 (Version None)
Quarter: 2011Q3

REPORT INFORMATION
  Report Type: 
  Country: None (occurrence: None)
  Receive Date: 20110819
  Receipt Date: 20110811
  Transmission Date: 20111222
  Serious: Yes (Hospitalization)
  Sender: FDA-Public Use
  Company Number: FR-SANOFI-AVENTIS-2011SA029984

PATIENT
  Age: 55 Year
  Sex: Male
  Weight: 73.5 kg

DRUGS (5)
  1. ATORVASTATIN CALCIUM [Concomitant]
     Route: 048
     Dates: start: 20070401
  2. ATACAND [Concomitant]
     Route: 048
     Dates: start: 20070401
  3. BISOPROLOL FUMARATE [Suspect]
     Route: 048
     Dates: start: 20070401, end: 20110118
  4. CLOPIDOGREL [Suspect]
     Route: 048
     Dates: start: 20101201, end: 20110118
  5. NITROGLYCERIN [Concomitant]

REACTIONS (3)
  - RAYNAUD'S PHENOMENON [None]
  - PERIPHERAL COLDNESS [None]
  - PERIPHERAL VASCULAR DISORDER [None]
